FAERS Safety Report 16638305 (Version 3)
Quarter: 2019Q3

REPORT INFORMATION
  Report Type: Spontaneous
  Country: JP (occurrence: JP)
  Receive Date: 20190726
  Receipt Date: 20190912
  Transmission Date: 20191004
  Serious: Yes (Hospitalization)
  Sender: FDA-Public Use
  Company Number: JP-BAUSCH-BL-2019-021192

PATIENT
  Age: 65 Year
  Sex: Male
  Weight: 63.9 kg

DRUGS (6)
  1. LUMICEF [Suspect]
     Active Substance: BRODALUMAB
     Route: 058
     Dates: start: 20190819
  2. METGLUCO [Concomitant]
     Active Substance: METFORMIN HYDROCHLORIDE
     Indication: PRODUCT USED FOR UNKNOWN INDICATION
     Dates: start: 20091118
  3. INSULIN GLARGINE BS [Concomitant]
     Active Substance: INSULIN GLARGINE
     Indication: PRODUCT USED FOR UNKNOWN INDICATION
     Dates: start: 201307
  4. LUMICEF [Suspect]
     Active Substance: BRODALUMAB
     Indication: PSORIASIS
     Dosage: DURATION: 1 YEAR 6 MONTHS 5 DAYS
     Route: 058
     Dates: start: 20180104, end: 20190718
  5. EQUA [Concomitant]
     Active Substance: VILDAGLIPTIN
     Indication: PRODUCT USED FOR UNKNOWN INDICATION
     Dates: start: 20110810
  6. AMARYL [Concomitant]
     Active Substance: GLIMEPIRIDE
     Indication: PRODUCT USED FOR UNKNOWN INDICATION
     Dates: start: 20100222

REACTIONS (3)
  - Skin exfoliation [Unknown]
  - Rash [Unknown]
  - Hepatocellular carcinoma [Recovering/Resolving]

NARRATIVE: CASE EVENT DATE: 20190710
